FAERS Safety Report 6743099-X (Version None)
Quarter: 2010Q2

REPORT INFORMATION
  Report Type: 
  Country: None (occurrence: None)
  Receive Date: 20100527
  Receipt Date: 20100513
  Transmission Date: 20101027
  Serious: Yes (Other)
  Sender: FDA-Public Use
  Company Number: US-RANBAXY-2010US-33869

PATIENT

DRUGS (6)
  1. LAMIVUDINE [Suspect]
     Indication: ANTIRETROVIRAL THERAPY
     Dosage: UNK, UNK
     Route: 065
  2. ZIDOVUDINE [Suspect]
     Indication: ANTIRETROVIRAL THERAPY
     Dosage: UNK, UNK
     Route: 065
  3. STAVUDINE [Suspect]
     Indication: ANTIRETROVIRAL THERAPY
     Dosage: UNK, UNK
     Route: 065
  4. NELFINAVIR [Suspect]
     Indication: ANTIRETROVIRAL THERAPY
     Dosage: UNK, UNK
     Route: 065
  5. CIDOFOVIR [Suspect]
     Indication: ANTIRETROVIRAL THERAPY
     Dosage: UNK, UNK
     Route: 065
  6. INDINAVIR [Suspect]
     Indication: ANTIRETROVIRAL THERAPY
     Dosage: UNK, UNK
     Route: 065

REACTIONS (1)
  - PROGRESSIVE MULTIFOCAL LEUKOENCEPHALOPATHY [None]
